FAERS Safety Report 25047064 (Version 2)
Quarter: 2025Q1

REPORT INFORMATION
  Report Type: Spontaneous
  Country: CN (occurrence: CN)
  Receive Date: 20250306
  Receipt Date: 20250307
  Transmission Date: 20250409
  Serious: Yes (Hospitalization)
  Sender: NOVARTIS
  Company Number: CN-002147023-NVSC2025CN034055

PATIENT
  Age: 70 Year
  Sex: Male
  Weight: 84.5 kg

DRUGS (2)
  1. EVEROLIMUS [Suspect]
     Active Substance: EVEROLIMUS
     Indication: Neoplasm
     Dosage: 5 MG, QD
     Route: 048
     Dates: start: 20240801, end: 20250101
  2. VOROLANIB [Suspect]
     Active Substance: VOROLANIB
     Indication: Neoplasm
     Dosage: 200 MG, QD
     Route: 048
     Dates: start: 20240801, end: 20250101

REACTIONS (2)
  - Oedema peripheral [Recovering/Resolving]
  - Movement disorder [Unknown]

NARRATIVE: CASE EVENT DATE: 20250108
